FAERS Safety Report 10423110 (Version 3)
Quarter: 2015Q3

REPORT INFORMATION
  Report Type: Spontaneous
  Country: DK (occurrence: DK)
  Receive Date: 20140902
  Receipt Date: 20150716
  Transmission Date: 20151125
  Serious: Yes (Hospitalization)
  Sender: FDA-Public Use
  Company Number: DK-AUROBINDO-AUR-APL-2014-09148

PATIENT
  Age: 54 Year
  Sex: Male

DRUGS (4)
  1. METFORMIN 500MG [Suspect]
     Active Substance: METFORMIN HYDROCHLORIDE
     Indication: PRODUCT USED FOR UNKNOWN INDICATION
     Dosage: 500 MG, ONCE A DAY
     Route: 065
     Dates: start: 20110202, end: 20131114
  2. BURINEX [Concomitant]
     Active Substance: BUMETANIDE
     Indication: PRODUCT USED FOR UNKNOWN INDICATION
     Dosage: 1 MG, TWO TIMES A DAY
     Route: 065
     Dates: start: 20111115
  3. ENALAPRIL [Concomitant]
     Active Substance: ENALAPRIL
     Indication: CARDIAC FAILURE
     Dosage: DOUBLE BLINDED / 245
     Route: 065
     Dates: start: 20110915, end: 20130220
  4. ALISKIREN [Concomitant]
     Active Substance: ALISKIREN
     Indication: CARDIAC FAILURE
     Dosage: DOUBLE BLINDED / 245
     Route: 065
     Dates: start: 20110915, end: 20130220

REACTIONS (6)
  - Syncope [Recovering/Resolving]
  - Dehydration [Recovering/Resolving]
  - Hypovolaemia [Recovering/Resolving]
  - Hyponatraemia [Recovered/Resolved]
  - Lactic acidosis [Recovering/Resolving]
  - Hypokalaemia [Recovering/Resolving]

NARRATIVE: CASE EVENT DATE: 20131111
